FAERS Safety Report 7939461-X (Version None)
Quarter: 2011Q4

REPORT INFORMATION
  Report Type: 
  Country: None (occurrence: None)
  Receive Date: 20111125
  Receipt Date: 20111115
  Transmission Date: 20120403
  Serious: Yes (Death, Hospitalization)
  Sender: FDA-Public Use
  Company Number: US-ROCHE-782396

PATIENT
  Sex: Female
  Weight: 93.4 kg

DRUGS (10)
  1. CALCIUM CARBONATE [Concomitant]
  2. AVASTIN [Suspect]
     Indication: OVARIAN EPITHELIAL CANCER
     Dosage: PHASE A(CYCLES=1-6):BEVAC: OVER 30 TO 90 MIN ON DAY 1, BEGINNING WITH CYCLE 2.
     Route: 042
     Dates: start: 20100506, end: 20100708
  3. PACLITAXEL [Suspect]
     Indication: OVARIAN EPITHELIAL CANCER
     Dosage: CYCLE = 3 WEEKS: PHASE A(CYCLES=1-6): OVER 3 HR ON DAYS 1
     Route: 050
     Dates: start: 20100506, end: 20100708
  4. ADDERALL XR 10 [Concomitant]
  5. OXYCODONE HYDROCHLORIDE AND PARACETAMOL [Suspect]
     Indication: PAIN
     Dosage: STRENGTH: 325 5 MG , 1-2 EVERY 4 HOURS PRN
  6. DIOVAN HCT [Concomitant]
     Dosage: DOSE: 12.5/160MG
  7. CISPLATIN [Suspect]
     Indication: OVARIAN EPITHELIAL CANCER
     Dosage: IP ON DAY 2.
     Route: 050
     Dates: start: 20100506, end: 20100709
  8. K-LYTE/CL [Concomitant]
     Route: 048
  9. COMPAZINE [Concomitant]
     Route: 048
  10. MAGNESIUM OXIDE [Concomitant]

REACTIONS (6)
  - INFECTIOUS PERITONITIS [None]
  - ABDOMINAL PAIN [None]
  - NAUSEA [None]
  - SMALL INTESTINAL PERFORATION [None]
  - DEHYDRATION [None]
  - ILEUS [None]
